FAERS Safety Report 8519025-X (Version None)
Quarter: 2012Q3

REPORT INFORMATION
  Report Type: 
  Country: None (occurrence: None)
  Receive Date: 20120718
  Receipt Date: 20120713
  Transmission Date: 20120928
  Serious: Yes (Other)
  Sender: FDA-Public Use
  Company Number: PHHY2012GB060721

PATIENT
  Sex: Male

DRUGS (5)
  1. VINCRISTINE [Suspect]
  2. MABTHERA [Suspect]
     Indication: B-CELL LYMPHOMA
  3. CYCLOPHOSPHAMIDE [Suspect]
  4. PREDNISONE [Suspect]
  5. DOXORUBICIN HCL [Suspect]

REACTIONS (1)
  - NEUTROPENIA [None]
